FAERS Safety Report 6842815-6 (Version None)
Quarter: 2010Q3

REPORT INFORMATION
  Report Type: 
  Country: None (occurrence: None)
  Receive Date: 20100714
  Receipt Date: 20070807
  Transmission Date: 20110219
  Serious: No
  Sender: FDA-Public Use
  Company Number: US-PFIZER INC-2007066662

PATIENT
  Age: 65 Year
  Sex: Female
  Weight: 95 kg

DRUGS (3)
  1. CHANTIX [Suspect]
     Indication: SMOKING CESSATION THERAPY
     Dates: start: 20070803
  2. OS-CAL [Suspect]
     Indication: OSTEOPOROSIS
     Dates: start: 20070806, end: 20070806
  3. PREDNISOLONE [Concomitant]
     Dates: start: 20070701, end: 20070804

REACTIONS (2)
  - FLATULENCE [None]
  - OSTEOPOROSIS [None]
